FAERS Safety Report 9468562 (Version 1)
Quarter: 2013Q3

REPORT INFORMATION
  Report Type: Spontaneous
  Country: US (occurrence: US)
  Receive Date: 20130821
  Receipt Date: 20130821
  Transmission Date: 20140515
  Serious: Yes (Hospitalization)
  Sender: FDA-Public Use
  Company Number: US-ASTRAZENECA-2013SE64512

PATIENT
  Sex: Female

DRUGS (1)
  1. ZOLADEX [Suspect]
     Indication: BREAST CANCER
     Route: 058

REACTIONS (4)
  - Malaise [Unknown]
  - Hormone level abnormal [Unknown]
  - Circumstance or information capable of leading to medication error [Unknown]
  - Drug dose omission [Not Recovered/Not Resolved]
